FAERS Safety Report 7825944-X (Version None)
Quarter: 2011Q4

REPORT INFORMATION
  Report Type: 
  Country: None (occurrence: None)
  Receive Date: 20111019
  Receipt Date: 20111007
  Transmission Date: 20120403
  Serious: Yes (Hospitalization)
  Sender: FDA-Public Use
  Company Number: AR-ROCHE-1004174

PATIENT
  Sex: Female

DRUGS (4)
  1. LUCENTIS [Suspect]
     Dosage: REGIMEN 2
     Route: 050
     Dates: start: 20100101
  2. LUCENTIS [Suspect]
     Indication: MACULOPATHY
     Dosage: REGIMEN 1
     Route: 050
     Dates: start: 20100101, end: 20110816
  3. LUCENTIS [Suspect]
     Dosage: REGIMEN 4
     Route: 050
     Dates: start: 20100101, end: 20110816
  4. LUCENTIS [Suspect]
     Dosage: REGIMEN 3
     Route: 050
     Dates: start: 20100101

REACTIONS (4)
  - MENISCUS LESION [None]
  - VISUAL IMPAIRMENT [None]
  - RETINAL OEDEMA [None]
  - FALL [None]
